FAERS Safety Report 7273536-6 (Version None)
Quarter: 2011Q1

REPORT INFORMATION
  Report Type: 
  Country: None (occurrence: None)
  Receive Date: 20110203
  Receipt Date: 20100721
  Transmission Date: 20110831
  Serious: No
  Sender: FDA-Public Use
  Company Number: US-ABBOTT-10P-163-0660366-00

PATIENT
  Sex: Male
  Weight: 76.726 kg

DRUGS (3)
  1. LEVOTHYROXINE [Suspect]
     Indication: PRODUCT USED FOR UNKNOWN INDICATION
     Route: 048
     Dates: start: 20100716, end: 20100717
  2. UNKNOWN SEVERAL OTHER MEDICATIONS [Concomitant]
     Indication: PRODUCT USED FOR UNKNOWN INDICATION
  3. LEVOTHYROXINE [Suspect]
     Route: 048
     Dates: start: 20100717, end: 20100719

REACTIONS (5)
  - DYSPHONIA [None]
  - COUGH [None]
  - ASTHENIA [None]
  - PHARYNGEAL OEDEMA [None]
  - DYSPNOEA [None]
